FAERS Safety Report 5413553-1 (Version None)
Quarter: 2007Q3

REPORT INFORMATION
  Report Type: 
  Country: None (occurrence: None)
  Receive Date: 20070814
  Receipt Date: 20070809
  Transmission Date: 20080115
  Serious: Yes (Life-Threatening)
  Sender: FDA-Public Use
  Company Number: JP-AVENTIS-200712126JP

PATIENT
  Age: 76 Year
  Sex: Male

DRUGS (3)
  1. CEFOTAX [Suspect]
     Indication: URINARY TRACT INFECTION
     Route: 041
     Dates: start: 20070704, end: 20070706
  2. CCL [Suspect]
     Indication: URINARY TRACT INFECTION
     Route: 048
     Dates: start: 20070629, end: 20070702
  3. PIRETAZOL [Suspect]
     Indication: URINARY TRACT INFECTION
     Route: 042
     Dates: start: 20070702, end: 20070704

REACTIONS (5)
  - ALANINE AMINOTRANSFERASE INCREASED [None]
  - BLOOD ALKALINE PHOSPHATASE INCREASED [None]
  - C-REACTIVE PROTEIN INCREASED [None]
  - GAMMA-GLUTAMYLTRANSFERASE INCREASED [None]
  - HYPERSENSITIVITY [None]
